FAERS Safety Report 13043495 (Version 1)
Quarter: 2016Q4

REPORT INFORMATION
  Report Type: Spontaneous
  Country: US (occurrence: US)
  Receive Date: 20161220
  Receipt Date: 20161220
  Transmission Date: 20170207
  Serious: Yes (Other)
  Sender: FDA-Public Use
  Company Number: US-USVNA-000002

PATIENT
  Sex: Female

DRUGS (1)
  1. OLOPATADINE/OLOPATADINE HYDROCHLORIDE [Suspect]
     Active Substance: OLOPATADINE
     Indication: PRODUCT USED FOR UNKNOWN INDICATION
     Dosage: STRENGTH: 0.1%
     Route: 047

REACTIONS (2)
  - Eye burns [Unknown]
  - Eye disorder [None]
